FAERS Safety Report 5369438-2 (Version None)
Quarter: 2007Q2

REPORT INFORMATION
  Report Type: 
  Country: None (occurrence: None)
  Receive Date: 20070621
  Receipt Date: 20070322
  Transmission Date: 20071010
  Serious: Yes (Other)
  Sender: FDA-Public Use
  Company Number: CIO07002796

PATIENT
  Age: 87 Year
  Sex: Female
  Weight: 67.1 kg

DRUGS (16)
  1. CREST W/ FLUORIDE [Suspect]
     Dosage: 1 APPLIC, 1/DAY FOR 1 DAY, INTRAORAL ; 1 APPLIC 3/DAY FOR 1 DAY, INTRAORAL
     Route: 048
     Dates: start: 20070219, end: 20070219
  2. CREST W/ FLUORIDE [Suspect]
     Dosage: 1 APPLIC, 1/DAY FOR 1 DAY, INTRAORAL ; 1 APPLIC 3/DAY FOR 1 DAY, INTRAORAL
     Route: 048
     Dates: start: 20070220, end: 20070220
  3. ANTIHYPERTENSIVES [Concomitant]
  4. DIURETICS [Concomitant]
  5. POTASSIUM (POTASSIUM) [Concomitant]
  6. PREMARIN /00073001/ (ESTROGENS CONJUGATED) [Concomitant]
  7. FUROSEMIDE [Concomitant]
  8. OXYBUTYNIN CHLORIDE [Concomitant]
  9. NIFEDICAL (NIFEDIPINE) [Concomitant]
  10. LASIX [Concomitant]
  11. PROCARDIA [Concomitant]
  12. XALATAN /01297301/ (LATANOPROST) [Concomitant]
  13. MULTIPLE VITAMINS (FOLIC ACID, VITAMIN B NOS, TOCOPHEROL, RETINOL, ERG [Concomitant]
  14. LYSINE [Concomitant]
  15. FISH OIL [Concomitant]
  16. CALCIUM CHLORIDE [Concomitant]

REACTIONS (16)
  - ANGIOEDEMA [None]
  - APHAGIA [None]
  - APHASIA [None]
  - BLOOD PRESSURE INCREASED [None]
  - CHOKING SENSATION [None]
  - DRUG HYPERSENSITIVITY [None]
  - DYSPHONIA [None]
  - GLOSSODYNIA [None]
  - HEART RATE INCREASED [None]
  - HYPERSENSITIVITY [None]
  - PHARYNGEAL OEDEMA [None]
  - SWOLLEN TONGUE [None]
  - THROAT IRRITATION [None]
  - TONGUE DISCOLOURATION [None]
  - TONGUE DISORDER [None]
  - TONGUE ULCERATION [None]
